FAERS Safety Report 4913563-4 (Version None)
Quarter: 2006Q1

REPORT INFORMATION
  Report Type: 
  Country: None (occurrence: None)
  Receive Date: 20060216
  Receipt Date: 20060210
  Transmission Date: 20060701
  Serious: Yes (Life-Threatening, Hospitalization)
  Sender: FDA-Public Use
  Company Number: 2006SE00878

PATIENT
  Age: 23974 Day
  Sex: Female

DRUGS (9)
  1. ZOMIG [Suspect]
     Indication: MIGRAINE
  2. LEVAXIN [Concomitant]
  3. GLUCOSAMINE [Concomitant]
  4. MUCOMYST [Concomitant]
     Indication: INCREASED BRONCHIAL SECRETION
     Dosage: WHEN NEEDED
  5. CALCIGRAN FORTE [Concomitant]
  6. RINEXIN [Concomitant]
     Indication: NASAL CONGESTION
     Dosage: WHEN NEEDED
  7. FLUTICASONE, SALMETEROL [Concomitant]
     Dosage: 1 INHALATION X 2 DAILY
     Route: 055
  8. ZYRTEC [Concomitant]
     Indication: HYPERSENSITIVITY
     Dosage: AS NEEDED
  9. SEROXAT [Concomitant]

REACTIONS (2)
  - BLOOD PRESSURE INCREASED [None]
  - CEREBRAL INFARCTION [None]
